FAERS Safety Report 7355885-6 (Version None)
Quarter: 2011Q1

REPORT INFORMATION
  Report Type: 
  Country: None (occurrence: None)
  Receive Date: 20110311
  Receipt Date: 20110311
  Transmission Date: 20110831
  Serious: Yes (Other)
  Sender: FDA-Public Use
  Company Number: None

PATIENT
  Age: 38 Year
  Sex: Female
  Weight: 63.5036 kg

DRUGS (1)
  1. MIRENA [Suspect]
     Indication: CONTRACEPTION
     Dosage: ONE DOSAGE AVAILABLE INSERTED FOR 5 YRS INTRA-UTERINE
     Route: 015
     Dates: start: 20081101, end: 20110310

REACTIONS (12)
  - BREAST TENDERNESS [None]
  - HYPOMENORRHOEA [None]
  - MENORRHAGIA [None]
  - ACNE [None]
  - WEIGHT INCREASED [None]
  - ABDOMINAL DISTENSION [None]
  - FATIGUE [None]
  - HEADACHE [None]
  - COGNITIVE DISORDER [None]
  - IRRITABILITY [None]
  - WEIGHT LOSS POOR [None]
  - HAIR GROWTH ABNORMAL [None]
